FAERS Safety Report 20473918 (Version 1)
Quarter: 2022Q1

REPORT INFORMATION
  Report Type: Spontaneous
  Country: PL (occurrence: PL)
  Receive Date: 20220215
  Receipt Date: 20220215
  Transmission Date: 20220423
  Serious: Yes (Hospitalization, Other)
  Sender: FDA-Public Use
  Company Number: PL-Accord-245724

PATIENT
  Age: 31 Year
  Sex: Male

DRUGS (4)
  1. ESCITALOPRAM [Interacting]
     Active Substance: ESCITALOPRAM OXALATE
     Indication: Depression
  2. CLARITHROMYCIN [Interacting]
     Active Substance: CLARITHROMYCIN
     Indication: Product used for unknown indication
     Dosage: 2 X 500 MG
     Route: 048
  3. AMLODIPINE\PERINDOPRIL [Interacting]
     Active Substance: AMLODIPINE\PERINDOPRIL
     Indication: Hypertension
     Dosage: 10 MG OF PERINDOPRIL AND 10 MG OF AMLODIPINE
  4. DEXTROMETHORPHAN [Interacting]
     Active Substance: DEXTROMETHORPHAN
     Indication: Antitussive therapy
     Dosage: 3 X 30 MG
     Route: 048

REACTIONS (5)
  - Cough [Recovered/Resolved]
  - Hyperhidrosis [Recovered/Resolved]
  - Joint swelling [Unknown]
  - Condition aggravated [Recovered/Resolved]
  - Drug interaction [Unknown]
